FAERS Safety Report 9140901 (Version 1)
Quarter: 2013Q1

REPORT INFORMATION
  Report Type: Spontaneous
  Country: US (occurrence: US)
  Receive Date: 20130305
  Receipt Date: 20130305
  Transmission Date: 20140127
  Serious: No
  Sender: FDA-Public Use
  Company Number: US-TEVA-389826USA

PATIENT
  Age: 10 Month
  Sex: Male

DRUGS (1)
  1. PROGLYCEM [Suspect]
     Dates: start: 20121201

REACTIONS (1)
  - Hirsutism [Not Recovered/Not Resolved]
